FAERS Safety Report 8987725 (Version 3)
Quarter: 2013Q1

REPORT INFORMATION
  Report Type: Spontaneous
  Country: JP (occurrence: JP)
  Receive Date: 20121227
  Receipt Date: 20130123
  Transmission Date: 20140127
  Serious: Yes (Hospitalization)
  Sender: FDA-Public Use
  Company Number: JP-VERTEX PHARMACEUTICALS INC.-2012-026590

PATIENT
  Age: 43 Year
  Sex: Male

DRUGS (10)
  1. TELAVIC [Suspect]
     Indication: CHRONIC HEPATITIS C
     Dosage: 1500 MG, QD
     Route: 048
     Dates: start: 20121016, end: 20121226
  2. REBETOL [Suspect]
     Indication: CHRONIC HEPATITIS C
     Dosage: 1000 MG, QD
     Route: 048
     Dates: start: 20121016, end: 20121112
  3. REBETOL [Suspect]
     Dosage: 800 MG, QD
     Route: 048
     Dates: start: 20121113, end: 20121203
  4. REBETOL [Suspect]
     Dosage: 400 MG, QD
     Route: 048
     Dates: start: 20121204, end: 20130104
  5. PEGINTRON [Suspect]
     Indication: CHRONIC HEPATITIS C
     Dosage: 1.5 ?G/KG, QW
     Route: 058
     Dates: start: 20121016, end: 20121225
  6. GLACTIV [Concomitant]
     Dosage: 50 MG, QD
     Route: 048
  7. METGLUCO [Concomitant]
     Dosage: 500 MG, QD
     Route: 048
  8. HUMALOG [Concomitant]
     Dosage: 13, 9, 11 UNITS/DAY
     Route: 058
  9. LANTUS [Concomitant]
     Dosage: 10 UT, QD
     Route: 058
  10. MICARDIS [Concomitant]
     Dosage: 20 MG, QD
     Route: 048

REACTIONS (3)
  - Rash [Recovered/Resolved]
  - Anaemia [Recovered/Resolved]
  - Hyperuricaemia [Recovered/Resolved]
